FAERS Safety Report 15196238 (Version 1)
Quarter: 2018Q3

REPORT INFORMATION
  Report Type: Spontaneous
  Country: US (occurrence: US)
  Receive Date: 20180626
  Receipt Date: 20180626
  Transmission Date: 20181010
  Serious: Yes (Hospitalization)
  Sender: FDA-Public Use
  Company Number: None

PATIENT
  Age: 80 Year
  Sex: Female

DRUGS (6)
  1. CAPECITABINE 500 MG [Suspect]
     Active Substance: CAPECITABINE
     Indication: COLON CANCER
     Dosage: WITHDRAWN
     Route: 048
     Dates: start: 20080222
  2. OMEPRAZOLE. [Concomitant]
     Active Substance: OMEPRAZOLE
  3. FERROUS [Concomitant]
     Active Substance: IRON
  4. FUROSEMIDE. [Concomitant]
     Active Substance: FUROSEMIDE
  5. CARVEDILOL. [Concomitant]
     Active Substance: CARVEDILOL
  6. DOCUSATE [Concomitant]
     Active Substance: DOCUSATE

REACTIONS (5)
  - Decreased appetite [None]
  - Dehydration [None]
  - Abdominal discomfort [None]
  - Clostridium difficile infection [None]
  - Drug intolerance [None]

NARRATIVE: CASE EVENT DATE: 20180202
